FAERS Safety Report 4472926-4 (Version None)
Quarter: 2004Q4

REPORT INFORMATION
  Report Type: 
  Country: None (occurrence: None)
  Receive Date: 20041007
  Receipt Date: 20041007
  Transmission Date: 20050328
  Serious: Yes (Other)
  Sender: FDA-Public Use
  Company Number: None

PATIENT
  Age: 19 Year
  Sex: Female
  Weight: 58.514 kg

DRUGS (2)
  1. ORTHO TRI-CYCLEN LO [Suspect]
     Indication: DYSMENORRHOEA
     Dosage: 1 TAB PO QD
     Route: 048
  2. ORTHO TRI-CYCLEN LO [Suspect]
     Indication: METRORRHAGIA
     Dosage: 1 TAB PO QD
     Route: 048

REACTIONS (2)
  - MENORRHAGIA [None]
  - PHARMACEUTICAL PRODUCT COMPLAINT [None]
